FAERS Safety Report 10912169 (Version 2)
Quarter: 2015Q2

REPORT INFORMATION
  Report Type: Report from Study
  Country: JP (occurrence: None)
  Receive Date: 20150309
  Receipt Date: 20150609
  Transmission Date: 20150821
  Serious: Yes (Hospitalization)
  Sender: FDA-Public Use
  Company Number: 2014MPI00957

PATIENT
  Age: 27 Year
  Sex: Male
  Weight: 56 kg

DRUGS (4)
  1. ADCETRIS [Suspect]
     Active Substance: BRENTUXIMAB VEDOTIN
     Indication: ANAPLASTIC LARGE-CELL LYMPHOMA
     Route: 041
     Dates: start: 20140612, end: 20140705
  2. ACETAMINOPHEN (PARACETAMOL) [Concomitant]
     Active Substance: ACETAMINOPHEN
  3. ADCETRIS [Suspect]
     Active Substance: BRENTUXIMAB VEDOTIN
     Indication: PRODUCT USED FOR UNKNOWN INDICATION
     Route: 041
     Dates: start: 20140612, end: 20140705
  4. ITRIZOLE (ITRACONAZOLE) [Concomitant]

REACTIONS (7)
  - Pyrexia [None]
  - Gamma-glutamyltransferase increased [None]
  - Aspartate aminotransferase increased [None]
  - Alanine aminotransferase increased [None]
  - C-reactive protein increased [None]
  - Blood bilirubin increased [None]
  - Neutropenia [None]

NARRATIVE: CASE EVENT DATE: 20140621
